FAERS Safety Report 23097041 (Version 1)
Quarter: 2023Q4

REPORT INFORMATION
  Report Type: Spontaneous
  Country: GB (occurrence: GB)
  Receive Date: 20231023
  Receipt Date: 20231023
  Transmission Date: 20240110
  Serious: Yes (Other)
  Sender: FDA-Public Use
  Company Number: None

PATIENT
  Age: 64 Year
  Sex: Female
  Weight: 68 kg

DRUGS (1)
  1. MONTELUKAST [Suspect]
     Active Substance: MONTELUKAST SODIUM
     Indication: Rhinitis allergic
     Dosage: 10MG
     Route: 048
     Dates: start: 20210722, end: 20211126

REACTIONS (5)
  - Depression [Unknown]
  - Depressed mood [Unknown]
  - Agitation [Unknown]
  - Poor quality sleep [Unknown]
  - Nightmare [Unknown]

NARRATIVE: CASE EVENT DATE: 20210722
